FAERS Safety Report 3728068 (Version 2)
Quarter: 2020Q3

REPORT INFORMATION
  Report Type: Report from Study
  Country: US (occurrence: US)
  Receive Date: 20020701
  Receipt Date: 20051010
  Transmission Date: 20201104
  Serious: Yes (Hospitalization)
  Sender: FDA-Public Use
  Company Number: NSADSS2001013379

PATIENT
  Age: 29 Year
  Sex: Male
  Weight: 100.7 kg

DRUGS (2)
  1. TOPIRAMATE. [Suspect]
     Active Substance: TOPIRAMATE
     Route: 048
     Dates: start: 20010415, end: 20010428
  2. TOPIRAMATE. [Suspect]
     Active Substance: TOPIRAMATE
     Indication: BIPOLAR DISORDER
     Route: 048
     Dates: start: 20010415, end: 20010428

REACTIONS (6)
  - Blood creatinine increased [Recovered/Resolved with Sequelae]
  - Hydronephrosis [None]
  - Ureterocele [Unknown]
  - Hydroureter [None]
  - Abdominal pain [Recovered/Resolved with Sequelae]
  - Renal fusion anomaly [Recovered/Resolved with Sequelae]

NARRATIVE: CASE EVENT DATE: 20010430
